FAERS Safety Report 6287067-3 (Version None)
Quarter: 2009Q3

REPORT INFORMATION
  Report Type: 
  Country: None (occurrence: None)
  Receive Date: 20090728
  Receipt Date: 20090218
  Transmission Date: 20100115
  Serious: Yes (Other)
  Sender: FDA-Public Use
  Company Number: IT-PFIZER INC-2009171474

PATIENT
  Age: 8 Year

DRUGS (3)
  1. SOMATROPIN [Suspect]
     Indication: GROWTH HORMONE DEFICIENCY
     Dosage: 0.16 MG/KG, 5MG, WEEKLY
     Dates: start: 20040201, end: 20040601
  2. SOMATROPIN [Suspect]
     Dosage: 0.09 MG/KG, 3MG, WEEKLY
     Dates: start: 20050301
  3. DEXAMETHASONE [Concomitant]
     Dosage: UNK
     Dates: start: 20040101

REACTIONS (1)
  - BRAIN OEDEMA [None]
